FAERS Safety Report 5168316-1 (Version None)
Quarter: 2006Q4

REPORT INFORMATION
  Report Type: 
  Country: None (occurrence: None)
  Receive Date: 20061208
  Receipt Date: 20060815
  Transmission Date: 20070319
  Serious: Yes (Disabling)
  Sender: FDA-Public Use
  Company Number: DE-ROCHE-459891

PATIENT
  Age: 42 Year
  Sex: Female
  Weight: 88 kg

DRUGS (26)
  1. ROCALTROL [Suspect]
     Indication: HYPOPARATHYROIDISM
     Dosage: DOSE: 2X1 TAB STRENGTH: 0.25 TAB
     Route: 048
     Dates: start: 19990210
  2. ROCALTROL [Suspect]
     Dosage: DOSE: 1X1 TAB STRENGTH 0.25 TAB
     Route: 048
     Dates: start: 19990615, end: 19990715
  3. ROCALTROL [Suspect]
     Dosage: DOSE: 1X1 STRENGTH: 0.5
     Route: 048
     Dates: start: 20030616
  4. ROCALTROL [Suspect]
     Dosage: DOSE: 1X1  STRENGTH: 0.5
     Route: 048
     Dates: start: 20031211
  5. ROCALTROL [Suspect]
     Dosage: THERAPY REPORTED AS 2X1 TABLET DAILY STRENGTH: 0.5
     Route: 048
     Dates: start: 20031218
  6. ROCALTROL [Suspect]
     Route: 048
  7. ROCALTROL [Suspect]
     Route: 048
     Dates: start: 20050115
  8. ROCALTROL [Suspect]
     Dosage: FORM: 0.25 MCG CAPSULE
     Route: 048
  9. VITAMIN D [Suspect]
     Indication: DRUG USE FOR UNKNOWN INDICATION
     Route: 065
  10. CALCIUM [Suspect]
     Indication: HYPOPARATHYROIDISM
     Route: 048
     Dates: start: 19990210
  11. CALCIUM [Suspect]
     Route: 048
  12. CALCIUM [Suspect]
     Dosage: DOSAGE TAPERED OFF
     Route: 048
     Dates: start: 19990315
  13. CALCIUM [Suspect]
     Route: 048
     Dates: start: 20030616
  14. CALCIUM [Suspect]
     Route: 048
     Dates: start: 20050115
  15. CALCIUM [Suspect]
     Dosage: DOSE WAS TAPERED OFF
     Route: 048
     Dates: start: 20050215
  16. CALCIUM [Suspect]
     Route: 048
  17. JODTHYROX [Concomitant]
     Indication: HYPOTHYROIDISM
     Dosage: DOSE: 1X1 TAB
     Dates: start: 19990210, end: 19990415
  18. THYRONAJOD [Concomitant]
     Dosage: DOSE: 1X1 TAB
     Dates: start: 19990310, end: 19990815
  19. LEVOTHYROXINE SODIUM [Concomitant]
     Indication: HYPOTHYROIDISM
     Dosage: DOSE REDUCED FROM 175 MCG/DAY ON 14 SEP 03 DUE TO DECREASED PULSE. REDUCED TO 75 MCG/DAY ON 4 NOV 03
     Dates: start: 19990426
  20. A.T. 10 [Concomitant]
     Dates: end: 20031211
  21. METOHEXAL SUCC [Concomitant]
     Dosage: DRUG: METOHEXAL-SUCC 47.5 MG RETARD
  22. ATENOLOL [Concomitant]
     Dosage: DRUG: ATENOLOL 50. DOSE STEADILY REDUCED, THEN STOPPED
  23. PHOSPHONORM [Concomitant]
  24. NEBILET [Concomitant]
     Dosage: 1 TABLET/DAY LATER REDUCED TO 0.5 TABLET/DAY
     Dates: start: 20031104
  25. CALCIUM CARBONATE [Concomitant]
     Dosage: DRUG: CALCIUM CARBONAT 500 SERTURNER. DOSE: 2X1
  26. CARBIMAZOL [Concomitant]
     Indication: HYPERTHYROIDISM
     Dates: start: 19980715

REACTIONS (11)
  - ANISOMETROPIA [None]
  - ASTIGMATISM [None]
  - BLOOD PHOSPHORUS INCREASED [None]
  - CATARACT [None]
  - HYPERTENSION [None]
  - HYPOPARATHYROIDISM [None]
  - KERATOCONJUNCTIVITIS SICCA [None]
  - LENTICULAR OPACITIES [None]
  - MYOPIA [None]
  - OSTEOPOROSIS [None]
  - TINNITUS [None]
